FAERS Safety Report 19862579 (Version 1)
Quarter: 2021Q3

REPORT INFORMATION
  Report Type: Spontaneous
  Country: FR (occurrence: FR)
  Receive Date: 20210921
  Receipt Date: 20210921
  Transmission Date: 20211014
  Serious: Yes (Hospitalization)
  Sender: FDA-Public Use
  Company Number: FR-MYLANLABS-2021M1063303

PATIENT
  Age: 70 Year
  Sex: Male
  Weight: 125 kg

DRUGS (6)
  1. VANCOMYCIN [Suspect]
     Active Substance: VANCOMYCIN
     Indication: UPPER AERODIGESTIVE TRACT INFECTION
     Dosage: 2300 MILLIGRAM, QD
     Route: 042
     Dates: start: 20210309, end: 20210311
  2. NORADRENALINE                      /00127501/ [Concomitant]
     Active Substance: NOREPINEPHRINE
     Dosage: UNK
  3. PANTOPRAZOLE [Concomitant]
     Active Substance: PANTOPRAZOLE
     Dosage: UNK
  4. CILASTATIN/IMIPENEM [Suspect]
     Active Substance: CILASTATIN SODIUM\IMIPENEM
     Indication: UPPER AERODIGESTIVE TRACT INFECTION
     Dosage: UNK
     Route: 042
     Dates: start: 20210309, end: 20210311
  5. HEPARINE SODIQUE [Concomitant]
     Active Substance: HEPARIN SODIUM
     Dosage: UNK
  6. CASPOFUNGIN [Suspect]
     Active Substance: CASPOFUNGIN
     Indication: FUNGAL INFECTION
     Dosage: 70 MILLIGRAM, QD
     Route: 042
     Dates: start: 20210310, end: 20210311

REACTIONS (2)
  - Cutaneous vasculitis [Recovered/Resolved]
  - Eosinophilia [Recovered/Resolved]

NARRATIVE: CASE EVENT DATE: 20210310
